FAERS Safety Report 25103732 (Version 2)
Quarter: 2025Q1

REPORT INFORMATION
  Report Type: Report from Study
  Country: HU (occurrence: HU)
  Receive Date: 20250321
  Receipt Date: 20250325
  Transmission Date: 20250408
  Serious: Yes (Hospitalization)
  Sender: BIOVITRUM
  Company Number: HU-AstraZeneca-CH-00830886A

PATIENT
  Age: 6 Month
  Sex: Male

DRUGS (1)
  1. PALIVIZUMAB [Suspect]
     Active Substance: PALIVIZUMAB
     Indication: Respiratory syncytial virus test
     Route: 030
     Dates: start: 20241108, end: 20250207

REACTIONS (3)
  - Cough [Recovered/Resolved]
  - Pyrexia [Recovered/Resolved]
  - Choking [Recovered/Resolved]

NARRATIVE: CASE EVENT DATE: 20241207
